FAERS Safety Report 13306189 (Version 1)
Quarter: 2017Q1

REPORT INFORMATION
  Report Type: Spontaneous
  Country: US (occurrence: US)
  Receive Date: 20170308
  Receipt Date: 20170308
  Transmission Date: 20170428
  Serious: No
  Sender: FDA-Public Use
  Company Number: US-BAYER-2017-043802

PATIENT
  Age: 50 Year
  Sex: Female

DRUGS (2)
  1. GADAVIST [Suspect]
     Active Substance: GADOBUTROL
     Indication: DEAFNESS
     Dosage: 10 ML, ONCE
     Route: 042
  2. CIPROBAY [Concomitant]
     Active Substance: CIPROFLOXACIN
     Indication: URINARY TRACT INFECTION
     Dosage: 2 DF, UNK
     Route: 048
     Dates: start: 20120512, end: 20120517

REACTIONS (3)
  - Urticaria [None]
  - Groin pain [None]
  - Pruritus [None]

NARRATIVE: CASE EVENT DATE: 20170306
